FAERS Safety Report 17789110 (Version 1)
Quarter: 2020Q2

REPORT INFORMATION
  Report Type: Spontaneous
  Country: IT (occurrence: IT)
  Receive Date: 20200514
  Receipt Date: 20200514
  Transmission Date: 20200714
  Serious: Yes (Other)
  Sender: FDA-Public Use
  Company Number: IT-SA-L/ITDTZ97001

PATIENT
  Age: 52 Year
  Sex: Male

DRUGS (4)
  1. METOPROLOL SALT NOT SPECIFIED [Suspect]
     Active Substance: METOPROLOL
     Indication: TYPE 2 DIABETES MELLITUS
     Dosage: UNK UNK,UNK
     Route: 065
     Dates: start: 198609, end: 1986
  2. GLIBENCLAMIDE [Suspect]
     Active Substance: GLYBURIDE
     Indication: TYPE 2 DIABETES MELLITUS
     Dosage: UNK UNK,UNK
     Route: 065
     Dates: start: 198609
  3. DILTIAZEM HYDROCHLORIDE. [Suspect]
     Active Substance: DILTIAZEM HYDROCHLORIDE
     Dosage: 180 MG, QD
     Route: 065
     Dates: start: 1986, end: 1986
  4. PHENFORMIN [Suspect]
     Active Substance: PHENFORMIN
     Indication: TYPE 2 DIABETES MELLITUS
     Dosage: UNK UNK,UNK
     Route: 065
     Dates: start: 198609

REACTIONS (5)
  - Angina unstable [Unknown]
  - Angioedema [Unknown]
  - Rash maculo-papular [Recovered/Resolved]
  - Hypersensitivity [Unknown]
  - Pyrexia [Recovered/Resolved]

NARRATIVE: CASE EVENT DATE: 1986
